FAERS Safety Report 7693889-4 (Version None)
Quarter: 2011Q3

REPORT INFORMATION
  Report Type: 
  Country: None (occurrence: None)
  Receive Date: 20110815
  Receipt Date: 20110810
  Transmission Date: 20111222
  Serious: Yes (Hospitalization)
  Sender: FDA-Public Use
  Company Number: 1000022775

PATIENT
  Sex: Female

DRUGS (1)
  1. DALIRESP [Suspect]
     Dosage: 500 MCG (500 MCG,1 IN 1 D),ORAL
     Route: 048
     Dates: start: 20110101, end: 20110101

REACTIONS (1)
  - APPENDICITIS [None]
